FAERS Safety Report 22058013 (Version 1)
Quarter: 2023Q1

REPORT INFORMATION
  Report Type: Spontaneous
  Country: US (occurrence: US)
  Receive Date: 20230303
  Receipt Date: 20230303
  Transmission Date: 20230417
  Serious: Yes (Other)
  Sender: FDA-Public Use
  Company Number: US-ALKEM LABORATORIES LIMITED-US-ALKEM-2022-15052

PATIENT
  Age: 23 Year
  Sex: Male

DRUGS (3)
  1. VANCOMYCIN [Suspect]
     Active Substance: VANCOMYCIN
     Indication: Cellulitis
     Dosage: UNK
     Route: 042
  2. VANCOMYCIN [Suspect]
     Active Substance: VANCOMYCIN
     Dosage: 125 MILLIGRAM, EVERY 12 HOURS
     Route: 048
  3. ERTAPENEM [Suspect]
     Active Substance: ERTAPENEM
     Indication: Cellulitis
     Dosage: 1 GRAM, QD
     Route: 042

REACTIONS (1)
  - Drug ineffective [Unknown]
